FAERS Safety Report 6389962-3 (Version None)
Quarter: 2009Q4

REPORT INFORMATION
  Report Type: 
  Country: None (occurrence: None)
  Receive Date: 20091006
  Receipt Date: 20090629
  Transmission Date: 20100525
  Serious: No
  Sender: FDA-Public Use
  Company Number: US-BRISTOL-MYERS SQUIBB COMPANY-14683353

PATIENT
  Age: 70 Year
  Sex: Male
  Weight: 84 kg

DRUGS (9)
  1. AVAPRO [Suspect]
     Indication: HYPERTENSION
     Dosage: DOSE REDUCED TO 75MG
  2. PRAVACHOL [Concomitant]
  3. LEVOXYL [Concomitant]
  4. ZANAFLEX [Concomitant]
     Indication: MYALGIA
  5. COENZYME Q10 [Concomitant]
  6. MAGNESIUM [Concomitant]
  7. OMEGA [Concomitant]
     Dosage: OMEGA 3-6-9
  8. VITAMIN B-12 [Concomitant]
  9. VITAMIN B6 [Concomitant]

REACTIONS (1)
  - NEUROPATHY PERIPHERAL [None]
